FAERS Safety Report 7407538-3 (Version None)
Quarter: 2011Q2

REPORT INFORMATION
  Report Type: 
  Country: None (occurrence: None)
  Receive Date: 20110412
  Receipt Date: 20110405
  Transmission Date: 20111010
  Serious: Yes (Hospitalization)
  Sender: FDA-Public Use
  Company Number: US-BIOGENIDEC-2011BI004923

PATIENT
  Age: 58 Year
  Sex: Female

DRUGS (3)
  1. AVONEX [Suspect]
     Indication: MULTIPLE SCLEROSIS
     Route: 030
     Dates: start: 20020809
  2. PAIN PILLS [Concomitant]
  3. TEGRETOL [Concomitant]

REACTIONS (2)
  - HALLUCINATION [None]
  - TOXICITY TO VARIOUS AGENTS [None]
